FAERS Safety Report 7819511-1 (Version None)
Quarter: 2011Q4

REPORT INFORMATION
  Report Type: 
  Country: None (occurrence: None)
  Receive Date: 20111018
  Receipt Date: 20101018
  Transmission Date: 20120403
  Serious: No
  Sender: FDA-Public Use
  Company Number: US-ASTRAZENECA-2010SE49285

PATIENT
  Sex: Female

DRUGS (1)
  1. SYMBICORT [Suspect]
     Dosage: 2 PUFFS DAILY
     Route: 055
     Dates: start: 20101015

REACTIONS (2)
  - TREATMENT NONCOMPLIANCE [None]
  - BRONCHITIS [None]
